FAERS Safety Report 12180393 (Version 2)
Quarter: 2016Q1

REPORT INFORMATION
  Report Type: Spontaneous
  Country: US (occurrence: US)
  Receive Date: 20160315
  Receipt Date: 20160322
  Transmission Date: 20160526
  Serious: Yes (Other)
  Sender: FDA-Public Use
  Company Number: US-AMGEN-USASP2016031176

PATIENT
  Age: 42 Year
  Sex: Male
  Weight: 87.9 kg

DRUGS (2)
  1. FAMVIR [Concomitant]
     Active Substance: FAMCICLOVIR
     Indication: HERPES SIMPLEX
     Dosage: 500 MG, AS NECESSARY
     Route: 048
  2. NPLATE [Suspect]
     Active Substance: ROMIPLOSTIM
     Indication: IMMUNE THROMBOCYTOPENIC PURPURA
     Dosage: 850 MUG, QWK
     Route: 058
     Dates: start: 20110324, end: 20160127

REACTIONS (4)
  - Platelet count decreased [Unknown]
  - White blood cell count increased [Unknown]
  - Fibrin increased [Unknown]
  - Myelofibrosis [Not Recovered/Not Resolved]

NARRATIVE: CASE EVENT DATE: 20160127
